FAERS Safety Report 20389991 (Version 1)
Quarter: 2022Q1

REPORT INFORMATION
  Report Type: Spontaneous
  Country: ZA (occurrence: ZA)
  Receive Date: 20220128
  Receipt Date: 20220128
  Transmission Date: 20220423
  Serious: Yes (Death)
  Sender: FDA-Public Use
  Company Number: ZA-NOVOPROD-885662

PATIENT
  Age: 79 Year
  Sex: Female

DRUGS (17)
  1. ESTRADIOL HEMIHYDRATE [Suspect]
     Active Substance: ESTRADIOL HEMIHYDRATE
     Indication: Hormone therapy
     Dosage: 1 MG
     Route: 048
     Dates: end: 202111
  2. NITRAZEPAM [Concomitant]
     Active Substance: NITRAZEPAM
     Indication: Insomnia
     Dosage: 5 MG
     Route: 048
     Dates: end: 202111
  3. DOXAZOSIN MESYLATE [Concomitant]
     Active Substance: DOXAZOSIN MESYLATE
     Dosage: 4 MG
     Route: 048
     Dates: end: 202111
  4. BISOPROLOL [Concomitant]
     Active Substance: BISOPROLOL
     Indication: Hypertension
     Dosage: 2.5 MG
     Route: 048
     Dates: end: 202111
  5. CARBAMAZEPINE [Concomitant]
     Active Substance: CARBAMAZEPINE
     Indication: Depression
     Dosage: 200 MG
     Route: 048
     Dates: end: 202111
  6. NIFEDIPINE [Concomitant]
     Active Substance: NIFEDIPINE
     Indication: Cardiac disorder
     Dosage: 60 MG
     Route: 048
     Dates: end: 202111
  7. EUTHYROX [Concomitant]
     Active Substance: LEVOTHYROXINE SODIUM
     Indication: Thyroid disorder
     Dosage: 50 MCG
     Route: 048
  8. EUTHYROX [Concomitant]
     Active Substance: LEVOTHYROXINE SODIUM
     Dosage: 100 MCG
     Route: 048
     Dates: end: 202111
  9. AMITRIPTYLINE [Concomitant]
     Active Substance: AMITRIPTYLINE
     Indication: Depression
     Dosage: 25 MG
     Route: 048
     Dates: end: 202111
  10. ISMO [Concomitant]
     Active Substance: ISOSORBIDE MONONITRATE
     Indication: Angina pectoris
     Dosage: 20 MG
     Route: 048
     Dates: end: 202111
  11. PANTOPRAZOLE SODIUM [Concomitant]
     Active Substance: PANTOPRAZOLE SODIUM
     Indication: Ulcer
     Dosage: 20 MG
     Route: 048
  12. PANTOPRAZOLE SODIUM [Concomitant]
     Active Substance: PANTOPRAZOLE SODIUM
     Dosage: 40 MG
     Route: 048
     Dates: end: 202111
  13. TAMBOCOR [Concomitant]
     Active Substance: FLECAINIDE ACETATE
     Indication: Cardiac disorder
     Dosage: 100 MG
     Route: 048
     Dates: end: 202111
  14. REGOVAL [Concomitant]
     Indication: Hypertension
     Dosage: UNK MG
     Route: 048
     Dates: end: 202111
  15. FUROSEMIDE [Concomitant]
     Active Substance: FUROSEMIDE
     Indication: Diuretic therapy
     Dosage: 40 MG
     Route: 048
     Dates: end: 202111
  16. ASPIRIN [Concomitant]
     Active Substance: ASPIRIN
     Indication: Prophylaxis
     Dosage: 100 MG
     Route: 048
     Dates: end: 202111
  17. TAMOLTRA [Concomitant]
     Indication: Pain
     Dosage: UNK
     Route: 048
     Dates: end: 202111

REACTIONS (2)
  - Cardiac failure [Fatal]
  - Pneumonia [Fatal]
